FAERS Safety Report 20411853 (Version 1)
Quarter: 2022Q1

REPORT INFORMATION
  Report Type: Report from Study
  Country: JP (occurrence: JP)
  Receive Date: 20220201
  Receipt Date: 20220201
  Transmission Date: 20220424
  Serious: Yes (Other)
  Sender: FDA-Public Use
  Company Number: JP-SA-2022SA026165

PATIENT

DRUGS (3)
  1. DOCETAXEL [Suspect]
     Active Substance: DOCETAXEL
     Indication: Oesophageal squamous cell carcinoma stage IV
     Dosage: 70 MG/M2,QCY (2-HOUR INFUSION) STARTING ON DAYS 1 AND 22 FOR A TOTAL OF 2 CYCLES
     Route: 042
  2. CISPLATIN [Suspect]
     Active Substance: CISPLATIN
     Indication: Oesophageal squamous cell carcinoma stage IV
     Dosage: 70 MG/M2, QCY (2 HOUR INFUSION) STARTING ON DAYS 1 AND 22 FOR 2 CYCLES)
     Route: 042
  3. FLUOROURACIL [Suspect]
     Active Substance: FLUOROURACIL
     Indication: Oesophageal squamous cell carcinoma stage IV
     Dosage: CONTINUOUS INFUSION OF 5-FU (700 MG/M2) FOR 5 DAYS, STARTING ON DAYS 1 AND 22 FOR A TOTAL OF 2 CYCLE

REACTIONS (1)
  - Gastrointestinal necrosis [Recovered/Resolved]
